FAERS Safety Report 21528174 (Version 1)
Quarter: 2022Q4

REPORT INFORMATION
  Report Type: Spontaneous
  Country: US (occurrence: US)
  Receive Date: 20221031
  Receipt Date: 20221031
  Transmission Date: 20230112
  Serious: No
  Sender: FDA-Public Use
  Company Number: US-RECKITT BENCKISER HEALTHCARE INT LIMITED-RB-99554-2021

PATIENT
  Sex: Male

DRUGS (4)
  1. MUCINEX [Suspect]
     Active Substance: GUAIFENESIN
     Indication: Respiratory tract congestion
     Dosage: UNK
     Route: 048
     Dates: start: 20211107, end: 20211114
  2. MUCINEX [Suspect]
     Active Substance: GUAIFENESIN
     Indication: Hypersensitivity
  3. MUCINEX [Suspect]
     Active Substance: GUAIFENESIN
     Indication: Respiratory tract congestion
     Dosage: UNK
     Route: 048
     Dates: start: 20211115, end: 20211115
  4. MUCINEX [Suspect]
     Active Substance: GUAIFENESIN
     Indication: Hypersensitivity

REACTIONS (4)
  - Drug ineffective [Not Recovered/Not Resolved]
  - Incorrect product administration duration [Unknown]
  - Product use in unapproved indication [Unknown]
  - Therapeutic product effect incomplete [Unknown]
